FAERS Safety Report 16280352 (Version 1)
Quarter: 2019Q2

REPORT INFORMATION
  Report Type: Spontaneous
  Country: BR (occurrence: BR)
  Receive Date: 20190507
  Receipt Date: 20190507
  Transmission Date: 20190711
  Serious: Yes (Other)
  Sender: FDA-Public Use
  Company Number: BR-GLAXOSMITHKLINE-BR2019GSK080416

PATIENT
  Age: 2 Year
  Sex: Male

DRUGS (2)
  1. ZINNAT [Suspect]
     Active Substance: CEFUROXIME
     Indication: OTITIS MEDIA
     Dosage: 4 ML, BID
     Dates: start: 20190430
  2. ZINNAT [Suspect]
     Active Substance: CEFUROXIME
     Dosage: 3.5 ML, BID

REACTIONS (1)
  - Hypothermia [Recovered/Resolved]

NARRATIVE: CASE EVENT DATE: 20190501
